FAERS Safety Report 10055852 (Version 1)
Quarter: 2014Q2

REPORT INFORMATION
  Report Type: Spontaneous
  Country: US (occurrence: US)
  Receive Date: 20140403
  Receipt Date: 20140403
  Transmission Date: 20141212
  Serious: Yes (Hospitalization)
  Sender: FDA-Public Use
  Company Number: US-BAYER-2014-049151

PATIENT
  Age: 18 Year
  Sex: Female
  Weight: 83.45 kg

DRUGS (6)
  1. YAZ [Suspect]
  2. YASMIN [Suspect]
  3. ZIANA [Concomitant]
  4. CEPHALEXIN [Concomitant]
     Dosage: 500 MG, BID 10 D
  5. HUMAN PAPILLOMA VACCINE [Concomitant]
     Dosage: UNK
     Dates: start: 20070425
  6. HUMAN PAPILLOMA VACCINE [Concomitant]
     Dosage: UNK
     Dates: start: 20070712

REACTIONS (2)
  - Pulmonary embolism [None]
  - Deep vein thrombosis [Recovering/Resolving]
